FAERS Safety Report 7291479-9 (Version None)
Quarter: 2011Q1

REPORT INFORMATION
  Report Type: 
  Country: None (occurrence: None)
  Receive Date: 20110214
  Receipt Date: 20110202
  Transmission Date: 20110831
  Serious: Yes (Other)
  Sender: FDA-Public Use
  Company Number: ES-ELI_LILLY_AND_COMPANY-ES201102000725

PATIENT
  Age: 13 Year
  Sex: Male

DRUGS (2)
  1. STRATTERA [Suspect]
     Indication: ATTENTION DEFICIT/HYPERACTIVITY DISORDER
     Dosage: 60 MG, UNK
     Route: 048
     Dates: start: 20110101, end: 20110201
  2. ZYPREXA [Concomitant]
     Dosage: 2.5 MG, UNK

REACTIONS (3)
  - BUNDLE BRANCH BLOCK RIGHT [None]
  - SYNCOPE [None]
  - ORTHOSTATIC HYPOTENSION [None]
